FAERS Safety Report 21010276 (Version 1)
Quarter: 2022Q2

REPORT INFORMATION
  Report Type: Spontaneous
  Country: US (occurrence: None)
  Receive Date: 20220625
  Receipt Date: 20220625
  Transmission Date: 20220721
  Serious: No
  Sender: FDA-Public Use
  Company Number: None

PATIENT
  Sex: Female

DRUGS (1)
  1. REVATIO [Suspect]
     Active Substance: SILDENAFIL CITRATE
     Indication: Pulmonary arterial hypertension
     Dosage: 80MG 3 TIMES DAILY BY MOUTH?
     Route: 048
     Dates: start: 20210128

REACTIONS (4)
  - Device malfunction [None]
  - Pneumonia [None]
  - Bronchitis [None]
  - Tongue disorder [None]
